FAERS Safety Report 23328073 (Version 2)
Quarter: 2024Q1

REPORT INFORMATION
  Report Type: Spontaneous
  Country: IE (occurrence: IE)
  Receive Date: 20231221
  Receipt Date: 20240209
  Transmission Date: 20240409
  Serious: Yes (Death, Hospitalization)
  Sender: FDA-Public Use
  Company Number: None

PATIENT
  Age: 89 Year
  Sex: Male

DRUGS (11)
  1. DIAZEPAM [Suspect]
     Active Substance: DIAZEPAM
     Indication: Restless legs syndrome
     Route: 065
     Dates: start: 20220919
  2. DIAZEPAM [Suspect]
     Active Substance: DIAZEPAM
     Indication: Parkinson^s disease
  3. NEUPRO [Suspect]
     Active Substance: ROTIGOTINE
     Indication: Parkinson^s disease
     Route: 065
  4. HALOPERIDOL [Suspect]
     Active Substance: HALOPERIDOL
     Indication: Analgesic therapy
     Route: 065
     Dates: start: 202211
  5. OMEPRAZOLE [Suspect]
     Active Substance: OMEPRAZOLE
     Indication: Hyperchlorhydria
     Route: 065
     Dates: start: 2022
  6. AZITHROMYCIN [Suspect]
     Active Substance: AZITHROMYCIN
     Indication: Campylobacter infection
     Route: 065
     Dates: start: 2022, end: 2022
  7. QUETIAPINE FUMARATE [Concomitant]
     Active Substance: QUETIAPINE FUMARATE
     Indication: Agitation
     Dosage: PATIENT WAS ON SINEMET AT 8:00AM, 11:00 AM, 4:00PM AND 10:00PM
     Route: 065
     Dates: start: 2022
  8. QUETIAPINE FUMARATE [Concomitant]
     Active Substance: QUETIAPINE FUMARATE
     Indication: Delusion
     Dates: start: 2022
  9. RIVOTRIL [Concomitant]
     Active Substance: CLONAZEPAM
     Indication: Restless legs syndrome
     Route: 065
  10. RIVOTRIL [Concomitant]
     Active Substance: CLONAZEPAM
     Indication: Parkinson^s disease
  11. SINEMET [Concomitant]
     Active Substance: CARBIDOPA\LEVODOPA
     Indication: Agitation
     Dosage: CONTROLLED RELEASED TABLETS, PATIENT WAS ON SINEMET AT 8:00AM, 11:00 AM, 4:00PM AND 10:00PM
     Route: 065
     Dates: start: 2022

REACTIONS (29)
  - COVID-19 pneumonia [Fatal]
  - Cyanosis [Fatal]
  - Altered state of consciousness [Fatal]
  - Dyspnoea [Fatal]
  - Hypoxia [Fatal]
  - Vomiting [Fatal]
  - Anaphylactic shock [Recovered/Resolved]
  - Confusional state [Fatal]
  - Heart rate increased [Fatal]
  - Delirium [Fatal]
  - Parkinson^s disease [Fatal]
  - Transient ischaemic attack [Fatal]
  - Mental impairment [Fatal]
  - Paralysis [Fatal]
  - Weight decreased [Fatal]
  - Parkinsonian crisis [Recovered/Resolved]
  - Starvation [Fatal]
  - Thermal burn [Fatal]
  - Sepsis [Fatal]
  - Multiple drug therapy [Fatal]
  - Accident [Fatal]
  - Campylobacter infection [Fatal]
  - Respiratory rate increased [Fatal]
  - Complication associated with device [Fatal]
  - Complication associated with device [Fatal]
  - Product administration interrupted [Fatal]
  - Contraindicated product administered [Fatal]
  - Wrong technique in product usage process [Fatal]
  - Product use in unapproved indication [Fatal]

NARRATIVE: CASE EVENT DATE: 20220101
